FAERS Safety Report 7782979-3 (Version None)
Quarter: 2011Q3

REPORT INFORMATION
  Report Type: 
  Country: None (occurrence: None)
  Receive Date: 20110926
  Receipt Date: 20110916
  Transmission Date: 20111222
  Serious: Yes (Life-Threatening, Hospitalization, Other)
  Sender: FDA-Public Use
  Company Number: 201111227

PATIENT
  Sex: Male

DRUGS (1)
  1. LIORESAL [Suspect]
     Indication: MUSCLE SPASTICITY
     Dosage: UNK MCG, DAILY, INTRATHECAL
     Route: 037

REACTIONS (25)
  - HOMICIDAL IDEATION [None]
  - CONTUSION [None]
  - COMMUNICATION DISORDER [None]
  - INSOMNIA [None]
  - DYSGRAPHIA [None]
  - ANXIETY [None]
  - FEAR [None]
  - FOOT FRACTURE [None]
  - RIB FRACTURE [None]
  - POST-TRAUMATIC STRESS DISORDER [None]
  - INCORRECT DOSE ADMINISTERED BY DEVICE [None]
  - APHASIA [None]
  - PAIN [None]
  - NAUSEA [None]
  - HAND FRACTURE [None]
  - WRIST FRACTURE [None]
  - MEDICAL DEVICE COMPLICATION [None]
  - SUICIDAL IDEATION [None]
  - WITHDRAWAL SYNDROME [None]
  - FACIAL BONES FRACTURE [None]
  - MUSCLE SPASMS [None]
  - MULTIPLE DRUG OVERDOSE [None]
  - FALL [None]
  - CONCUSSION [None]
  - NIGHTMARE [None]
